FAERS Safety Report 5120341-2 (Version None)
Quarter: 2006Q4

REPORT INFORMATION
  Report Type: 
  Country: None (occurrence: None)
  Receive Date: 20061002
  Receipt Date: 20061002
  Transmission Date: 20070319
  Serious: Yes (Life-Threatening, Hospitalization)
  Sender: FDA-Public Use
  Company Number: None

PATIENT
  Age: 19 Year
  Sex: Male
  Weight: 70.3075 kg

DRUGS (1)
  1. CLEOCIN [Suspect]
     Indication: ACNE
     Dosage: 1 CAPSULE 1 TIME PER DAY PO
     Route: 048

REACTIONS (6)
  - CLOSTRIDIAL INFECTION [None]
  - COLITIS [None]
  - GASTROINTESTINAL INFECTION [None]
  - MEGACOLON [None]
  - PYREXIA [None]
  - VIRAL INFECTION [None]
